FAERS Safety Report 5774370-6 (Version None)
Quarter: 2008Q2

REPORT INFORMATION
  Report Type: 
  Country: None (occurrence: None)
  Receive Date: 20080616
  Receipt Date: 20071011
  Transmission Date: 20081010
  Serious: Yes (Life-Threatening, Hospitalization)
  Sender: FDA-Public Use
  Company Number: GB-BAXTER-2007BH008357

PATIENT
  Sex: Male
  Weight: 22 kg

DRUGS (10)
  1. GENTAMICIN [Suspect]
     Indication: PSEUDOMONAS INFECTION
     Route: 042
     Dates: start: 20020430, end: 20020513
  2. CEFTAZIDIME [Suspect]
     Indication: PSEUDOMONAS INFECTION
     Route: 042
     Dates: start: 20020430, end: 20020513
  3. ABDEC [Concomitant]
  4. CIPROFLOXACIN [Concomitant]
     Route: 048
  5. COLISTIN SULFATE [Concomitant]
     Route: 055
     Dates: start: 20020516
  6. CREON ^DUPHAR^ [Concomitant]
     Indication: CYSTIC FIBROSIS
     Route: 048
  7. FLIXONASE [Concomitant]
     Route: 045
  8. FLOXACILLIN SODIUM [Concomitant]
     Route: 048
  9. POTASSIUM CHLORIDE [Concomitant]
  10. SODIUM [Concomitant]

REACTIONS (3)
  - BLOOD CREATININE INCREASED [None]
  - RENAL FAILURE ACUTE [None]
  - RENAL TUBULAR NECROSIS [None]
